FAERS Safety Report 7516246-X (Version None)
Quarter: 2011Q2

REPORT INFORMATION
  Report Type: 
  Country: None (occurrence: None)
  Receive Date: 20110601
  Receipt Date: 20110520
  Transmission Date: 20111010
  Serious: Yes (Hospitalization)
  Sender: FDA-Public Use
  Company Number: US-NOVOPROD-328702

PATIENT
  Sex: Male
  Weight: 88.43 kg

DRUGS (3)
  1. VICTOZA [Suspect]
     Dosage: 1.2 MG, QD
     Dates: start: 20110520
  2. VICTOZA [Suspect]
     Indication: TYPE 2 DIABETES MELLITUS
     Dosage: 0.6 MG, QD
     Dates: start: 20110514, end: 20110516
  3. LISINOPRIL [Concomitant]
     Indication: HYPERTENSION

REACTIONS (3)
  - DEHYDRATION [None]
  - LOSS OF CONSCIOUSNESS [None]
  - BLOOD GLUCOSE INCREASED [None]
